FAERS Safety Report 5240404-0 (Version None)
Quarter: 2007Q1

REPORT INFORMATION
  Report Type: 
  Country: None (occurrence: None)
  Receive Date: 20070219
  Receipt Date: 20070205
  Transmission Date: 20070707
  Serious: Yes (Hospitalization, Other)
  Sender: FDA-Public Use
  Company Number: PHRM2007FR00712

PATIENT
  Age: 76 Year
  Sex: Male

DRUGS (1)
  1. LAMISIL [Suspect]
     Indication: NAIL TINEA
     Dosage: 250 MG, QD
     Route: 048
     Dates: start: 20060901, end: 20060923

REACTIONS (8)
  - ASTHENIA [None]
  - BEDRIDDEN [None]
  - FALL [None]
  - JAUNDICE [None]
  - OCULAR ICTERUS [None]
  - PAIN [None]
  - SPINAL COMPRESSION FRACTURE [None]
  - WEIGHT DECREASED [None]
